FAERS Safety Report 5752538-2 (Version None)
Quarter: 2008Q2

REPORT INFORMATION
  Report Type: 
  Country: None (occurrence: None)
  Receive Date: 20080529
  Receipt Date: 20080521
  Transmission Date: 20081010
  Serious: Yes (Other)
  Sender: FDA-Public Use
  Company Number: PHHY2008JP08612

PATIENT
  Age: 62 Year
  Sex: Male

DRUGS (3)
  1. DIOVAN [Suspect]
     Indication: HYPERTENSION
     Dosage: 80 MG, QD
     Route: 048
     Dates: start: 20080214
  2. AMLODIPINE BESYLATE [Concomitant]
     Dosage: UNK
     Route: 048
     Dates: start: 20080214
  3. MEVALOTIN [Concomitant]
     Dosage: UNK
     Route: 048
     Dates: start: 20080214, end: 20080401

REACTIONS (1)
  - BLOOD CREATINE PHOSPHOKINASE INCREASED [None]
